FAERS Safety Report 9519130 (Version 1)
Quarter: 2013Q3

REPORT INFORMATION
  Report Type: Spontaneous
  Country: US (occurrence: US)
  Receive Date: 20130912
  Receipt Date: 20130912
  Transmission Date: 20140515
  Serious: Yes (Other)
  Sender: FDA-Public Use
  Company Number: US-JNJFOC-20130901409

PATIENT
  Sex: Female
  Weight: 77.11 kg

DRUGS (11)
  1. DURAGESIC [Suspect]
     Indication: PAIN
     Dosage: 2003 OR 2004
     Route: 062
  2. DURAGESIC [Suspect]
     Indication: PAIN
     Route: 062
  3. DURAGESIC [Suspect]
     Indication: PAIN
     Route: 062
  4. DURAGESIC [Suspect]
     Indication: PAIN
     Route: 062
  5. DURAGESIC [Suspect]
     Indication: PAIN
     Route: 062
  6. DURAGESIC [Suspect]
     Indication: PAIN
     Route: 062
  7. DURAGESIC [Suspect]
     Indication: PAIN
     Route: 062
  8. DURAGESIC [Suspect]
     Indication: PAIN
     Route: 062
  9. UNSPECIFIED FENTANYL TRANSDERMAL SYSTEM [Suspect]
     Indication: PAIN
     Route: 062
  10. DEPAKOTE [Suspect]
     Indication: PAIN
     Dosage: 2005 OR 2006
     Route: 065
  11. PROTRIPTYLINE [Suspect]
     Indication: MIGRAINE
     Route: 065

REACTIONS (6)
  - Memory impairment [Not Recovered/Not Resolved]
  - Product quality issue [Unknown]
  - Drug ineffective [Recovered/Resolved]
  - Pain [Not Recovered/Not Resolved]
  - Malaise [Unknown]
  - Wrong technique in drug usage process [Unknown]
